FAERS Safety Report 19804357 (Version 1)
Quarter: 2021Q3

REPORT INFORMATION
  Report Type: Spontaneous
  Country: US (occurrence: US)
  Receive Date: 20210908
  Receipt Date: 20210908
  Transmission Date: 20211014
  Serious: No
  Sender: FDA-Public Use
  Company Number: US-FARMAPROD-202105-0786

PATIENT
  Sex: Female

DRUGS (12)
  1. XIIDRA [Concomitant]
     Active Substance: LIFITEGRAST
     Dosage: DROPERETTE
  2. COSENTYX [Concomitant]
     Active Substance: SECUKINUMAB
     Dosage: PEN
  3. MAGNESIUM [Concomitant]
     Active Substance: MAGNESIUM
  4. TIMOLOL/DORZOLAMIDE [Concomitant]
     Active Substance: DORZOLAMIDE\TIMOLOL
     Dosage: 2 %?0.5 %
  5. INDOMETHACIN. [Concomitant]
     Active Substance: INDOMETHACIN
  6. VITAMIN B?100 COMPLEX [Concomitant]
  7. VITAMIN D?400 [Concomitant]
  8. FIORICET [Concomitant]
     Active Substance: ACETAMINOPHEN\BUTALBITAL\CAFFEINE
     Dosage: 50?300?40
  9. VALACYCLOVIR [Concomitant]
     Active Substance: VALACYCLOVIR HYDROCHLORIDE
  10. OXERVATE [Suspect]
     Active Substance: CENEGERMIN-BKBJ
     Indication: NEUROTROPHIC KERATOPATHY
     Route: 047
     Dates: start: 20210407
  11. SULFASALAZINE. [Concomitant]
     Active Substance: SULFASALAZINE
  12. REFRESH CLASSIC [Concomitant]
     Active Substance: POLYVINYL ALCOHOL\POVIDONE

REACTIONS (1)
  - Eye infection [Unknown]
